FAERS Safety Report 9915726 (Version 1)
Quarter: 2014Q1

REPORT INFORMATION
  Report Type: Spontaneous
  Country: US (occurrence: None)
  Receive Date: 20140219
  Receipt Date: 20140219
  Transmission Date: 20141002
  Serious: Yes (Other)
  Sender: FDA-Public Use
  Company Number: None

PATIENT
  Age: 79 Year
  Sex: Female
  Weight: 79.83 kg

DRUGS (5)
  1. PROLIA [Suspect]
     Indication: OSTEOPOROSIS
     Dates: start: 20131020
  2. LISINOPRIL [Concomitant]
  3. FUROSEMIDE [Concomitant]
  4. KLORKON [Concomitant]
  5. SYMBICORT [Concomitant]

REACTIONS (2)
  - Arthralgia [None]
  - Weight bearing difficulty [None]
